FAERS Safety Report 4329762-9 (Version None)
Quarter: 2004Q2

REPORT INFORMATION
  Report Type: 
  Country: None (occurrence: None)
  Receive Date: 20040401
  Receipt Date: 20040325
  Transmission Date: 20050107
  Serious: Yes (Hospitalization)
  Sender: FDA-Public Use
  Company Number: FR-GLAXOSMITHKLINE-B0328032A

PATIENT
  Age: 75 Year
  Sex: Female

DRUGS (5)
  1. AUGMENTIN [Suspect]
     Indication: SKIN BACTERIAL INFECTION
     Route: 048
     Dates: start: 20040119, end: 20040121
  2. BETADINE [Suspect]
     Indication: SKIN BACTERIAL INFECTION
     Route: 061
     Dates: start: 20040119, end: 20040121
  3. OXACILLIN [Concomitant]
     Route: 048
     Dates: start: 20031101, end: 20040118
  4. FUCIDINE CAP [Concomitant]
     Route: 061
     Dates: start: 20031101, end: 20040118
  5. DIPROSONE [Concomitant]
     Route: 061
     Dates: start: 20031101, end: 20040118

REACTIONS (1)
  - ECZEMA [None]
